FAERS Safety Report 11285133 (Version 1)
Quarter: 2015Q3

REPORT INFORMATION
  Report Type: Other
  Country: GB (occurrence: GB)
  Receive Date: 20150720
  Receipt Date: 20150720
  Transmission Date: 20151125
  Serious: Yes (Hospitalization)
  Sender: FDA-Public Use
  Company Number: GB-MYLANLABS-2015M1022924

PATIENT

DRUGS (2)
  1. BENDROFLUMETHIAZIDE [Suspect]
     Active Substance: BENDROFLUMETHIAZIDE
     Dosage: 2.5 MG, QD
     Dates: end: 20140928
  2. LOSARTAN. [Suspect]
     Active Substance: LOSARTAN
     Dosage: 100 MG, QD
     Dates: end: 20140928

REACTIONS (3)
  - Malaise [Not Recovered/Not Resolved]
  - Acute kidney injury [Not Recovered/Not Resolved]
  - Sepsis [Not Recovered/Not Resolved]
